FAERS Safety Report 7442811-4 (Version None)
Quarter: 2011Q2

REPORT INFORMATION
  Report Type: 
  Country: None (occurrence: None)
  Receive Date: 20110428
  Receipt Date: 20110419
  Transmission Date: 20111010
  Serious: Yes (Death, Life-Threatening, Hospitalization)
  Sender: FDA-Public Use
  Company Number: GB-TEVA-275232ISR

PATIENT
  Age: 65 Year
  Sex: Male

DRUGS (7)
  1. DEXAMETHASONE [Suspect]
     Route: 048
  2. ONDANSETRON [Suspect]
     Route: 048
  3. PEMETREXED [Suspect]
     Route: 042
     Dates: start: 20101221, end: 20110225
  4. DALTEPARIN SODIUM [Suspect]
     Indication: LUNG NEOPLASM MALIGNANT
     Dates: start: 20101220, end: 20110225
  5. MORPHINE SULFATE [Suspect]
     Route: 048
  6. CISPLATIN [Suspect]
     Route: 042
     Dates: start: 20101221, end: 20110225
  7. APREPITANT [Suspect]
     Route: 042
     Dates: start: 20110225, end: 20110225

REACTIONS (6)
  - CONSTIPATION [None]
  - LUNG CANCER METASTATIC [None]
  - ABDOMINAL PAIN [None]
  - NAUSEA [None]
  - PERITONITIS [None]
  - LARGE INTESTINE PERFORATION [None]
